FAERS Safety Report 24849353 (Version 2)
Quarter: 2025Q1

REPORT INFORMATION
  Report Type: Spontaneous
  Country: CN (occurrence: CN)
  Receive Date: 20250116
  Receipt Date: 20250117
  Transmission Date: 20250409
  Serious: Yes (Other)
  Sender: PFIZER
  Company Number: CN-PFIZER INC-202500004263

PATIENT
  Age: 66 Year
  Sex: Male
  Weight: 70 kg

DRUGS (17)
  1. MEROPENEM [Suspect]
     Active Substance: MEROPENEM
     Indication: Empyema
     Dates: start: 20231017, end: 20231030
  2. MEROPENEM [Suspect]
     Active Substance: MEROPENEM
     Indication: Pneumonia
     Dates: start: 20231109
  3. MEROPENEM [Suspect]
     Active Substance: MEROPENEM
     Indication: Abdominal infection
  4. ERAVACYCLINE [Suspect]
     Active Substance: ERAVACYCLINE
     Dosage: 50 MG/TIME, 2X/DAY
     Dates: start: 20241109
  5. LEVOFLOXACIN [Suspect]
     Active Substance: LEVOFLOXACIN
     Dates: start: 20231028
  6. OMADACYCLINE [Suspect]
     Active Substance: OMADACYCLINE
     Indication: Pneumonia
  7. OMADACYCLINE [Suspect]
     Active Substance: OMADACYCLINE
     Indication: Abdominal infection
     Dosage: MAINTENANCE 100 MG/TIME, ONCE DAILY
     Dates: end: 20241213
  8. OMADACYCLINE [Suspect]
     Active Substance: OMADACYCLINE
     Indication: Empyema
  9. VANCOMYCIN [Concomitant]
     Active Substance: VANCOMYCIN
     Indication: Empyema
     Dates: start: 20231020
  10. VANCOMYCIN [Concomitant]
     Active Substance: VANCOMYCIN
     Indication: Pneumonia
  11. VANCOMYCIN [Concomitant]
     Active Substance: VANCOMYCIN
     Indication: Abdominal infection
  12. POLYMYXIN B [Concomitant]
     Active Substance: POLYMYXIN B
     Indication: Pneumonia
     Dates: end: 20241213
  13. POLYMYXIN B [Concomitant]
     Active Substance: POLYMYXIN B
     Indication: Abdominal infection
  14. POLYMYXIN B [Concomitant]
     Active Substance: POLYMYXIN B
     Indication: Empyema
  15. DOXYCYCLINE [Concomitant]
     Active Substance: DOXYCYCLINE
     Indication: Pneumonia
     Dosage: 100 MG/TIME, TWICE DAILY
  16. DOXYCYCLINE [Concomitant]
     Active Substance: DOXYCYCLINE
     Indication: Abdominal infection
  17. DOXYCYCLINE [Concomitant]
     Active Substance: DOXYCYCLINE
     Indication: Empyema

REACTIONS (3)
  - Rash [Recovering/Resolving]
  - Drug hypersensitivity [Recovering/Resolving]
  - Eosinophilia [Recovering/Resolving]

NARRATIVE: CASE EVENT DATE: 20230101
